FAERS Safety Report 25971901 (Version 1)
Quarter: 2025Q4

REPORT INFORMATION
  Report Type: Spontaneous
  Country: CN (occurrence: CN)
  Receive Date: 20251029
  Receipt Date: 20251029
  Transmission Date: 20260117
  Serious: Yes (Other)
  Sender: CSL BEHRING
  Company Number: CN-BEH-2025223339

PATIENT
  Age: 96 Year
  Sex: Male

DRUGS (2)
  1. ALBURX [Suspect]
     Active Substance: ALBUMIN HUMAN
     Indication: Hypoproteinaemia
     Dosage: 100 ML, OD
     Route: 041
     Dates: start: 20250928, end: 20250928
  2. ALBURX [Suspect]
     Active Substance: ALBUMIN HUMAN
     Indication: Blood osmolarity

REACTIONS (5)
  - Hypotension [Recovering/Resolving]
  - Heart rate increased [Recovering/Resolving]
  - Rash [Recovering/Resolving]
  - Pruritus [Unknown]
  - Urticaria [Unknown]

NARRATIVE: CASE EVENT DATE: 20250928
